FAERS Safety Report 24457282 (Version 1)
Quarter: 2024Q4

REPORT INFORMATION
  Report Type: Report from Study
  Country: TR (occurrence: TR)
  Receive Date: 20241018
  Receipt Date: 20241018
  Transmission Date: 20250115
  Serious: Yes (Other)
  Sender: AUROBINDO
  Company Number: TR-AUROBINDO-AUR-APL-2024-049680

PATIENT
  Age: 69 Year
  Sex: Female

DRUGS (1)
  1. MELPHALAN [Suspect]
     Active Substance: MELPHALAN
     Indication: Product used for unknown indication
     Dosage: UNK (200 MG/M2/AUTO)
     Route: 065

REACTIONS (4)
  - Atrial flutter [Unknown]
  - Cardiac disorder [Unknown]
  - Cardiotoxicity [Unknown]
  - Supraventricular tachycardia [Unknown]
